FAERS Safety Report 15897326 (Version 1)
Quarter: 2019Q1

REPORT INFORMATION
  Report Type: Spontaneous
  Country: ES (occurrence: ES)
  Receive Date: 20190131
  Receipt Date: 20190131
  Transmission Date: 20190417
  Serious: Yes (Other)
  Sender: FDA-Public Use
  Company Number: ES-GILEAD-2019-0387238

PATIENT
  Age: 58 Year
  Sex: Male

DRUGS (5)
  1. TENOFOVIR DISOPROXIL FUMARATE. [Suspect]
     Active Substance: TENOFOVIR DISOPROXIL FUMARATE
     Indication: HEPATITIS B
     Dosage: UNK
     Route: 065
     Dates: start: 201006
  2. PRODERMA [Concomitant]
     Indication: RHINOPHYMA
     Dosage: 100 MG, QD
  3. PANTECTA [Concomitant]
     Active Substance: PANTOPRAZOLE SODIUM
  4. PARACETAMOL [Concomitant]
     Active Substance: ACETAMINOPHEN
  5. PRODERMA [Concomitant]
     Indication: ROSACEA

REACTIONS (3)
  - Tongue neoplasm malignant stage unspecified [Unknown]
  - Renal impairment [Not Recovered/Not Resolved]
  - Hypophosphataemia [Not Recovered/Not Resolved]
